FAERS Safety Report 8366150-2 (Version None)
Quarter: 2012Q2

REPORT INFORMATION
  Report Type: 
  Country: None (occurrence: None)
  Receive Date: 20120515
  Receipt Date: 20120503
  Transmission Date: 20120825
  Serious: Yes (Hospitalization)
  Sender: FDA-Public Use
  Company Number: 2012MA005895

PATIENT
  Age: 75 Year
  Sex: Male

DRUGS (4)
  1. FEXOFENADINE [Concomitant]
  2. FLUCLOXACILLIN [Concomitant]
  3. LORATADINE [Concomitant]
  4. RAMIPRIL [Suspect]
     Indication: HYPERTENSION
     Dosage: 5 MG, QD, PO
     Route: 048
     Dates: start: 20120329, end: 20120419

REACTIONS (4)
  - RASH PRURITIC [None]
  - SKIN ULCER [None]
  - INFLAMMATION [None]
  - NO THERAPEUTIC RESPONSE [None]
